FAERS Safety Report 16459145 (Version 1)
Quarter: 2019Q2

REPORT INFORMATION
  Report Type: Spontaneous
  Country: GB (occurrence: GB)
  Receive Date: 20190620
  Receipt Date: 20190620
  Transmission Date: 20190711
  Serious: Yes (Disabling, Other)
  Sender: FDA-Public Use
  Company Number: GB-MYLANLABS-2019M1057128

PATIENT
  Age: 69 Year
  Sex: Male
  Weight: 98.42 kg

DRUGS (3)
  1. FINASTERIDE. [Suspect]
     Active Substance: FINASTERIDE
     Indication: BENIGN PROSTATIC HYPERPLASIA
     Dosage: 5 MILLIGRAM
     Route: 048
     Dates: start: 20100501, end: 20181220
  2. XARELTO [Concomitant]
     Active Substance: RIVAROXABAN
     Dosage: 20
  3. TAMSULOSIN [Concomitant]
     Active Substance: TAMSULOSIN
     Dosage: UNK

REACTIONS (5)
  - Self-injurious ideation [Recovering/Resolving]
  - Helplessness [Recovering/Resolving]
  - Panic attack [Recovering/Resolving]
  - Asthenia [Unknown]
  - Depression [Recovering/Resolving]

NARRATIVE: CASE EVENT DATE: 20150101
